FAERS Safety Report 5597912-2 (Version None)
Quarter: 2007Q4

REPORT INFORMATION
  Report Type: 
  Country: None (occurrence: None)
  Receive Date: 20071221
  Receipt Date: 20070918
  Transmission Date: 20080405
  Serious: Yes (Life-Threatening, Other)
  Sender: FDA-Public Use
  Company Number: HQWYE247820SEP07

PATIENT
  Age: 43 Year
  Sex: Female
  Weight: 81.27 kg

DRUGS (5)
  1. LYBREL [Suspect]
     Indication: DYSMENORRHOEA
     Dosage: 1 TABLET 1X PER 1 DAY, ORAL
     Route: 048
     Dates: end: 20070910
  2. LYBREL [Suspect]
     Indication: ENDOMETRIOSIS
     Dosage: 1 TABLET 1X PER 1 DAY, ORAL
     Route: 048
     Dates: end: 20070910
  3. PRILOSEC [Concomitant]
  4. DARVOCET-N (DEXTROPROPOXYPHENE/PARACETAMOL) [Concomitant]
  5. KLONOPIN [Concomitant]

REACTIONS (1)
  - DEEP VEIN THROMBOSIS [None]
